FAERS Safety Report 20925989 (Version 4)
Quarter: 2022Q3

REPORT INFORMATION
  Report Type: Spontaneous
  Country: JP (occurrence: JP)
  Receive Date: 20220607
  Receipt Date: 20220726
  Transmission Date: 20221026
  Serious: Yes (Hospitalization)
  Sender: FDA-Public Use
  Company Number: JP-MYOVANT SCIENCES GMBH-2022MYSCI0500664

PATIENT
  Age: 39 Year
  Sex: Female

DRUGS (7)
  1. RELUGOLIX [Suspect]
     Active Substance: RELUGOLIX
     Indication: Uterine leiomyoma
     Dosage: 40 MILLIGRAM, QD
     Route: 048
     Dates: start: 20220314, end: 20220326
  2. RELUGOLIX [Suspect]
     Active Substance: RELUGOLIX
     Indication: Uterine leiomyoma
  3. RELUGOLIX [Suspect]
     Active Substance: RELUGOLIX
     Indication: Uterine leiomyoma
  4. HERBALS [Concomitant]
     Active Substance: HERBALS
     Indication: Uterine leiomyoma
     Dosage: 7.5 GRAM, QD
     Route: 048
     Dates: start: 20210921
  5. HERBALS [Concomitant]
     Active Substance: HERBALS
     Indication: Uterine leiomyoma
  6. HERBALS [Concomitant]
     Active Substance: HERBALS
     Indication: Feeling cold
  7. COIX SEED EXTRACT                  /01647802/ [Concomitant]
     Indication: Acne
     Dosage: 9 DOSAGE FORM, QD
     Route: 048
     Dates: start: 20210921

REACTIONS (1)
  - Genital haemorrhage [Recovered/Resolved]

NARRATIVE: CASE EVENT DATE: 20220326
